FAERS Safety Report 4568112-X (Version None)
Quarter: 2005Q1

REPORT INFORMATION
  Report Type: 
  Country: None (occurrence: None)
  Receive Date: 20050131
  Receipt Date: 20050117
  Transmission Date: 20050727
  Serious: Yes (Hospitalization)
  Sender: FDA-Public Use
  Company Number: 2005013919

PATIENT
  Age: 78 Year
  Sex: Female

DRUGS (2)
  1. VIAGRA [Suspect]
     Indication: PULMONARY HYPERTENSION
     Dosage: (50 MG, UNKNOWN), ORAL
     Route: 048
     Dates: start: 20040101
  2. ENOXAPARIN SODIUM [Concomitant]

REACTIONS (6)
  - CYANOSIS [None]
  - HYPERTENSION [None]
  - OXYGEN SATURATION DECREASED [None]
  - PULMONARY FIBROSIS [None]
  - PULMONARY OEDEMA [None]
  - TACHYCARDIA [None]
